FAERS Safety Report 12484078 (Version 1)
Quarter: 2016Q2

REPORT INFORMATION
  Report Type: Spontaneous
  Country: US (occurrence: None)
  Receive Date: 20160620
  Receipt Date: 20160620
  Transmission Date: 20160815
  Serious: Yes (Life-Threatening, Hospitalization)
  Sender: FDA-Public Use
  Company Number: None

PATIENT
  Age: 63 Year
  Sex: Male
  Weight: 101 kg

DRUGS (1)
  1. RITUXIMAB [Suspect]
     Active Substance: RITUXIMAB
     Indication: B-CELL LYMPHOMA
     Dosage: 825 MG OTHER IV
     Route: 042
     Dates: start: 20160609, end: 20160610

REACTIONS (3)
  - Tachycardia [None]
  - Respiratory depression [None]
  - Anaphylactic reaction [None]

NARRATIVE: CASE EVENT DATE: 20160611
